FAERS Safety Report 7742067-9 (Version None)
Quarter: 2011Q3

REPORT INFORMATION
  Report Type: 
  Country: None (occurrence: None)
  Receive Date: 20110912
  Receipt Date: 20110906
  Transmission Date: 20111222
  Serious: Yes (Hospitalization, Other)
  Sender: FDA-Public Use
  Company Number: PHHY2011NL78852

PATIENT
  Sex: Female

DRUGS (3)
  1. ZOMETA [Suspect]
     Indication: COLON CANCER
     Dosage: 4 MG,  PER 28 DAYS
     Route: 042
     Dates: start: 20110215
  2. ZOMETA [Suspect]
     Dosage: UNK
     Dates: start: 20110809
  3. ZOMETA [Suspect]
     Dosage: UNK
     Dates: start: 20110906

REACTIONS (4)
  - FLUID RETENTION [None]
  - PULMONARY OEDEMA [None]
  - GENERAL PHYSICAL HEALTH DETERIORATION [None]
  - DYSPNOEA [None]
